FAERS Safety Report 11984357 (Version 1)
Quarter: 2016Q1

REPORT INFORMATION
  Report Type: Spontaneous
  Country: US (occurrence: US)
  Receive Date: 20160201
  Receipt Date: 20160201
  Transmission Date: 20160526
  Serious: No
  Sender: FDA-Public Use
  Company Number: US-KADMON PHARMACEUTICALS, LLC-KAD201508-002769

PATIENT
  Sex: Female

DRUGS (3)
  1. FISH OIL [Concomitant]
     Active Substance: FISH OIL
     Dates: start: 2014
  2. VIEKIRA PAK [Suspect]
     Active Substance: DASABUVIR\OMBITASVIR\PARITAPREVIR\RITONAVIR
     Route: 048
  3. RIBAVIRIN. [Suspect]
     Active Substance: RIBAVIRIN
     Indication: HEPATITIS C
     Dosage: TABLET
     Route: 048

REACTIONS (2)
  - Weight increased [Unknown]
  - Weight fluctuation [Unknown]
